FAERS Safety Report 7602512-6 (Version None)
Quarter: 2011Q3

REPORT INFORMATION
  Report Type: 
  Country: None (occurrence: None)
  Receive Date: 20110701
  Receipt Date: 20110620
  Transmission Date: 20111222
  Serious: Yes (Other)
  Sender: FDA-Public Use
  Company Number: JP-1186471

PATIENT
  Age: 48 Year
  Sex: Male
  Weight: 63 kg

DRUGS (3)
  1. TRAVATAN Z [Suspect]
     Indication: NORMAL TENSION GLAUCOMA
     Dosage: (1 GTT QD OPHTHALMIC)
     Route: 047
     Dates: start: 20080222, end: 20100719
  2. DUOTRAV OPHTHALMIC SOLUTION (DUOTRAV) 1 GTT [Suspect]
     Indication: NORMAL TENSION GLAUCOMA
     Dosage: (1 GTT QD OPTHALMIC)
     Route: 047
     Dates: start: 20100720, end: 20110517
  3. AZOPT [Suspect]
     Indication: NORMAL TENSION GLAUCOMA
     Dosage: (1 GTT BID OPHTHALMIC)
     Route: 047
     Dates: start: 20070118, end: 20110517

REACTIONS (4)
  - ASTHMA [None]
  - SYSTEMIC LUPUS ERYTHEMATOSUS [None]
  - ERYTHEMA ANNULARE [None]
  - PRURITUS GENERALISED [None]
